FAERS Safety Report 8648571 (Version 2)
Quarter: 2012Q4

REPORT INFORMATION
  Report Type: Report from Study
  Country: MK (occurrence: MK)
  Receive Date: 20120703
  Receipt Date: 20121109
  Transmission Date: 20130627
  Serious: Yes (Life-Threatening)
  Sender: FDA-Public Use
  Company Number: MK-GLAXOSMITHKLINE-B0810818A

PATIENT
  Sex: Male
  Weight: 46 kg

DRUGS (4)
  1. NELARABINE [Suspect]
     Indication: HAEMATOLOGICAL MALIGNANCY
     Route: 065
     Dates: start: 20120330, end: 20120626
  2. CYCLOPHOSPHAMIDE [Suspect]
     Route: 065
     Dates: start: 20120507
  3. ETOPOSIDE [Suspect]
     Route: 065
     Dates: start: 20120507
  4. CORTICOSTEROIDS [Suspect]
     Route: 065
     Dates: start: 20120507

REACTIONS (1)
  - Leukocytosis [Not Recovered/Not Resolved]
